FAERS Safety Report 21435839 (Version 2)
Quarter: 2022Q4

REPORT INFORMATION
  Report Type: Spontaneous
  Country: CN (occurrence: CN)
  Receive Date: 20221010
  Receipt Date: 20221026
  Transmission Date: 20230113
  Serious: Yes (Other)
  Sender: FDA-Public Use
  Company Number: CN-PHARMAAND-2022PHR00245

PATIENT
  Age: 30 Year
  Sex: Male
  Weight: 89 kg

DRUGS (2)
  1. PEGASYS [Suspect]
     Active Substance: PEGINTERFERON ALFA-2A
     Indication: Chronic hepatitis B
     Dosage: 180 ?G ONCE PER 7 DAYS
     Route: 059
     Dates: start: 20211228
  2. PEGASYS [Suspect]
     Active Substance: PEGINTERFERON ALFA-2A
     Dosage: 180 EVERY 1 WEEK(S) 180 UG EVERY 2 DAYS
     Dates: start: 20211228

REACTIONS (5)
  - Anti-thyroid antibody increased [Unknown]
  - Myelosuppression [Unknown]
  - Dysgeusia [Unknown]
  - Dry mouth [Unknown]
  - Off label use [Unknown]

NARRATIVE: CASE EVENT DATE: 20220829
